FAERS Safety Report 21208973 (Version 1)
Quarter: 2022Q3

REPORT INFORMATION
  Report Type: Spontaneous
  Country: US (occurrence: US)
  Receive Date: 20220812
  Receipt Date: 20220812
  Transmission Date: 20221026
  Serious: No
  Sender: FDA-Public Use
  Company Number: US-NOVARTISTESTPH-NVSC2022US183000

PATIENT
  Sex: Female

DRUGS (17)
  1. RECLAST [Suspect]
     Active Substance: ZOLEDRONIC ACID
     Indication: Product used for unknown indication
     Dosage: 5 MG, ONCE/SINGLE
     Route: 065
     Dates: start: 202108
  2. XELJANZ [Concomitant]
     Active Substance: TOFACITINIB CITRATE
     Indication: Product used for unknown indication
     Route: 065
  3. LYRICA [Concomitant]
     Active Substance: PREGABALIN
     Indication: Product used for unknown indication
     Route: 065
  4. CYMBALTA [Concomitant]
     Active Substance: DULOXETINE HYDROCHLORIDE
     Indication: Product used for unknown indication
     Route: 065
  5. OMEPRAZOLE [Concomitant]
     Active Substance: OMEPRAZOLE
     Indication: Product used for unknown indication
     Route: 065
  6. LEVOTHYROXINE [Concomitant]
     Active Substance: LEVOTHYROXINE
     Indication: Product used for unknown indication
     Route: 065
  7. ARAVA [Concomitant]
     Active Substance: LEFLUNOMIDE
     Indication: Product used for unknown indication
     Route: 065
  8. ATORVASTATIN [Concomitant]
     Active Substance: ATORVASTATIN
     Indication: Product used for unknown indication
     Route: 065
  9. TILIQUINOL [Concomitant]
     Indication: Product used for unknown indication
     Route: 065
  10. DEXMETHYLPHENIDATE [Concomitant]
     Active Substance: DEXMETHYLPHENIDATE
     Indication: Product used for unknown indication
     Route: 065
  11. TYLENOL [Concomitant]
     Active Substance: ACETAMINOPHEN
     Indication: Product used for unknown indication
     Dosage: 1300 MG
     Route: 065
  12. VITAMIN B3 [Concomitant]
     Active Substance: NIACIN
     Indication: Product used for unknown indication
     Route: 065
  13. VALSARTAN [Concomitant]
     Active Substance: VALSARTAN
     Indication: Product used for unknown indication
     Route: 065
  14. LOSARTAN [Concomitant]
     Active Substance: LOSARTAN
     Indication: Product used for unknown indication
     Route: 065
  15. RIZATRIPTAN [Concomitant]
     Active Substance: RIZATRIPTAN
     Indication: Product used for unknown indication
     Route: 065
  16. MECLIZINE [Concomitant]
     Active Substance: MECLIZINE HYDROCHLORIDE
     Indication: Product used for unknown indication
     Route: 065
  17. AMOXICILLIN [Concomitant]
     Active Substance: AMOXICILLIN
     Indication: Product used for unknown indication
     Route: 065

REACTIONS (6)
  - Adrenal disorder [Unknown]
  - Fatigue [Unknown]
  - Pain [Unknown]
  - Fibromyalgia [Unknown]
  - Diarrhoea [Unknown]
  - Scoliosis [Unknown]
